FAERS Safety Report 5454246-4 (Version None)
Quarter: 2007Q3

REPORT INFORMATION
  Report Type: 
  Country: None (occurrence: None)
  Receive Date: 20070802
  Receipt Date: 20070330
  Transmission Date: 20080115
  Serious: No
  Sender: FDA-Public Use
  Company Number: 2007US000746

PATIENT
  Age: 28 Year
  Sex: Female

DRUGS (2)
  1. VAPRISOL [Suspect]
     Indication: DRUG USE FOR UNKNOWN INDICATION
     Dosage: IV DRIP
     Route: 041
     Dates: start: 20070328
  2. FENTANYL CITRATE [Concomitant]

REACTIONS (1)
  - INJECTION SITE REACTION [None]
